FAERS Safety Report 9252832 (Version 4)
Quarter: 2013Q4

REPORT INFORMATION
  Report Type: Spontaneous
  Country: US (occurrence: US)
  Receive Date: 20130424
  Receipt Date: 20131219
  Transmission Date: 20140711
  Serious: Yes (Hospitalization)
  Sender: FDA-Public Use
  Company Number: US-ELI_LILLY_AND_COMPANY-US201304004795

PATIENT
  Age: 84 Year
  Sex: Female

DRUGS (3)
  1. FORTEO [Suspect]
     Indication: OSTEOPOROSIS
     Dosage: 20 UG, QD
     Route: 058
     Dates: start: 201108
  2. FORTEO [Suspect]
     Dosage: 20 UG, QD
     Route: 058
  3. CALCIUM [Concomitant]

REACTIONS (6)
  - Femur fracture [Recovered/Resolved]
  - Fall [Recovered/Resolved]
  - Head injury [Unknown]
  - Subdural haematoma [Unknown]
  - Fall [Unknown]
  - Arthralgia [Unknown]
